FAERS Safety Report 7817528-4 (Version None)
Quarter: 2011Q4

REPORT INFORMATION
  Report Type: 
  Country: None (occurrence: None)
  Receive Date: 20111017
  Receipt Date: 20111013
  Transmission Date: 20120403
  Serious: Yes (Hospitalization)
  Sender: FDA-Public Use
  Company Number: CA-ABBOTT-11P-028-0862937-00

PATIENT
  Sex: Female
  Weight: 56.75 kg

DRUGS (4)
  1. HUMIRA [Suspect]
     Indication: CROHN'S DISEASE
     Route: 058
     Dates: start: 20100416, end: 20110101
  2. DEPO-MEDROL [Concomitant]
     Indication: CROHN'S DISEASE
     Route: 054
  3. DEMEROL [Concomitant]
     Indication: CROHN'S DISEASE
     Route: 030
  4. HUMIRA [Suspect]
     Route: 058
     Dates: start: 20110101, end: 20110101

REACTIONS (7)
  - NAUSEA [None]
  - TREATMENT NONCOMPLIANCE [None]
  - VOMITING [None]
  - NEPHROLITHIASIS [None]
  - CROHN'S DISEASE [None]
  - WEIGHT INCREASED [None]
  - DEHYDRATION [None]
